FAERS Safety Report 12216302 (Version 1)
Quarter: 2016Q1

REPORT INFORMATION
  Report Type: Spontaneous
  Country: GB (occurrence: GB)
  Receive Date: 20160329
  Receipt Date: 20160329
  Transmission Date: 20160526
  Serious: Yes (Disabling)
  Sender: FDA-Public Use
  Company Number: GB-ACCORD-039071

PATIENT
  Age: 55 Year
  Sex: Male
  Weight: 74 kg

DRUGS (7)
  1. ALFACALCIDOL [Concomitant]
     Active Substance: ALFACALCIDOL
  2. BISOPROLOL [Concomitant]
     Active Substance: BISOPROLOL
  3. SEVELAMER/SEVELAMER HYDROCHLORIDE [Concomitant]
  4. MYCOPHENOLIC ACID. [Suspect]
     Active Substance: MYCOPHENOLIC ACID
     Indication: ANTI-NEUTROPHIL CYTOPLASMIC ANTIBODY POSITIVE VASCULITIS
     Dosage: HAD BEEN TITRATED UP TO 1G TWICE A DAY
     Route: 048
     Dates: start: 20150930, end: 20160217
  5. CALCIUM CARBONATE. [Concomitant]
     Active Substance: CALCIUM CARBONATE
  6. PREDNISOLONE. [Concomitant]
     Active Substance: PREDNISOLONE
  7. OMEPRAZOLE. [Concomitant]
     Active Substance: OMEPRAZOLE

REACTIONS (6)
  - Haemorrhoids [Unknown]
  - Diverticulum [Recovered/Resolved with Sequelae]
  - Large intestinal ulcer [Unknown]
  - Anorectal disorder [Unknown]
  - Off label use [Unknown]
  - Gastrointestinal mucosa hyperaemia [Unknown]

NARRATIVE: CASE EVENT DATE: 20160215
